FAERS Safety Report 23363735 (Version 1)
Quarter: 2024Q1

REPORT INFORMATION
  Report Type: Spontaneous
  Country: GB (occurrence: GB)
  Receive Date: 20240103
  Receipt Date: 20240103
  Transmission Date: 20240410
  Serious: Yes (Hospitalization)
  Sender: FDA-Public Use
  Company Number: GB-ROCHE-3342741

PATIENT
  Age: 68 Year
  Weight: 96.2 kg

DRUGS (4)
  1. CYCLOPHOSPHAMIDE [Suspect]
     Active Substance: CYCLOPHOSPHAMIDE
     Indication: Follicular lymphoma
     Dosage: DATE OF LAST ADMINISTRATION: 09/JUN/2022 AND 07/JUL/2022
     Route: 065
     Dates: start: 20220427
  2. OBINUTUZUMAB [Suspect]
     Active Substance: OBINUTUZUMAB
     Indication: Follicular lymphoma
     Dosage: DATE OF LAST ADMINISTRATION: 09/JUN/2022 AND 07/JUL/2022; ;
     Route: 065
     Dates: start: 20220427
  3. PREDNISONE [Suspect]
     Active Substance: PREDNISONE
     Indication: Follicular lymphoma
     Dosage: DATE OF LAST ADMINISTRATION: 09/JUN/2022 AND 07/JUL/2022; ;
     Route: 065
     Dates: start: 20220427
  4. VINCRISTINE [Suspect]
     Active Substance: VINCRISTINE
     Indication: Follicular lymphoma
     Dosage: DATE OF LAST ADMINISTRATION: 09/JUN/2022 AND 07/JUL/2022; ;
     Route: 065
     Dates: start: 20220427

REACTIONS (2)
  - Neutropenic sepsis [Recovered/Resolved]
  - Pneumonia [Recovered/Resolved]

NARRATIVE: CASE EVENT DATE: 20220624
